FAERS Safety Report 4590621-8 (Version None)
Quarter: 2005Q1

REPORT INFORMATION
  Report Type: 
  Country: None (occurrence: None)
  Receive Date: 20050224
  Receipt Date: 20050208
  Transmission Date: 20050727
  Serious: Yes (Other)
  Sender: FDA-Public Use
  Company Number: AU-NOVOPROD-242168

PATIENT
  Age: 34 Year
  Sex: Female
  Weight: 230 kg

DRUGS (28)
  1. ACTRAPID [Suspect]
     Indication: DIABETES MELLITUS INSULIN-DEPENDENT
     Dosage: 188 IU, UNK
     Dates: start: 20041125
  2. PROTAPHANE PENFILL [Suspect]
     Indication: DIABETES MELLITUS INSULIN-DEPENDENT
     Dosage: 56 IU, UNK
     Dates: start: 20041125
  3. ACCU CHECK ACTIVE TEST STRIP [Concomitant]
  4. ACTRAPID [Concomitant]
     Dosage: 100 IU, UNK
  5. AUSGEM [Concomitant]
     Dosage: 600 MG 1 BD AC.
  6. BRICANYL [Concomitant]
     Dosage: 500 MCG/DOSE 2 INH. 4 HOURLY PRN
  7. CALTRATE [Concomitant]
     Dosage: 1500 MG, UNK
  8. CORTICOSTEROIDS [Concomitant]
     Dosage: 1% CREAM APPLY BD PRN.
  9. DIAZEPAM [Concomitant]
     Dosage: 5 MG, UNK
  10. GAVISCON LIQUID ^FERRING^ [Concomitant]
     Dosage: 500-267 MG-160 MG/10 ML-10-20 ML
  11. GLUCOBAY [Concomitant]
     Dosage: 100 MG/2 TID
     Route: 048
  12. GLYADE [Concomitant]
     Dosage: 80 MG 2 BD AC.
  13. HEPARIN [Concomitant]
     Dosage: 5000 U/5 ML
  14. INDOCIN [Concomitant]
     Dosage: 100 MG 1 PER RECTUM DAILY
  15. IPRATRIN [Concomitant]
     Dosage: 500 MCG/ML USE IN NEBULISER 6 H.
  16. MAXOLON [Concomitant]
     Dosage: 10 MG 1 TID  PRN
  17. METFORMIN HCL [Concomitant]
     Dosage: 100 MG 1 TID CC
  18. MS CONTIN [Concomitant]
     Dosage: 100 MG T1BD
  19. MS CONTIN [Concomitant]
     Dosage: 1 BD MDU
  20. OXIS TURBUHALER ^ASTRAZENECA^ [Concomitant]
     Dosage: 12 MCG/DOSE, 1-2 INHAL BD.
  21. PANAMAX [Concomitant]
     Dosage: 1-2 / 4 HOURS PRN
  22. PROTAPHANE PENFILL [Concomitant]
     Dosage: 100 IU, UNK
  23. PULMICORT [Concomitant]
     Dosage: 100 MCG/INHAL. 2 INH. BD AS REQ.
  24. SOMAC [Concomitant]
     Dosage: 40 MG/2 NOCTE
  25. STEMETIL ^AVENTIS PHARMA^ [Concomitant]
     Dosage: 5 MG 1 TID PRN.
  26. TEGRETOL [Concomitant]
     Dosage: 200 MG 2 BD
  27. VENTOLIN                           /00139501/ [Concomitant]
     Dosage: 2.5 MG/2.5 ML
  28. ZACTIN [Concomitant]
     Dosage: 20 MG 2 DAILY

REACTIONS (5)
  - ABDOMINAL DISTENSION [None]
  - ANAPHYLACTIC SHOCK [None]
  - CELLULITIS [None]
  - DYSPNOEA [None]
  - INJECTION SITE INFLAMMATION [None]
